FAERS Safety Report 5907961-X (Version None)
Quarter: 2008Q4

REPORT INFORMATION
  Report Type: 
  Country: None (occurrence: None)
  Receive Date: 20081003
  Receipt Date: 20080924
  Transmission Date: 20090506
  Serious: Yes (Hospitalization)
  Sender: FDA-Public Use
  Company Number: FI-PFIZER INC-2008076026

PATIENT
  Sex: Female
  Weight: 75 kg

DRUGS (13)
  1. SU-011,248 [Suspect]
     Indication: BREAST CANCER
     Route: 048
     Dates: start: 20080515
  2. DOCETAXEL [Suspect]
     Route: 042
     Dates: start: 20080514
  3. NEUPOGEN [Concomitant]
     Indication: NEUTROPENIA
     Dosage: DAILY DOSE:480MCG-FREQ:DAILY
     Dates: start: 20080627, end: 20080821
  4. NEUPOGEN [Concomitant]
     Indication: INFECTION PROPHYLAXIS
  5. COZAAR [Concomitant]
     Route: 048
     Dates: start: 20030101, end: 20080729
  6. RANITIDINE [Concomitant]
     Route: 048
     Dates: start: 20080801, end: 20080806
  7. LACTOPHILUS [Concomitant]
     Route: 048
     Dates: start: 20080613
  8. METOCLOPRAMIDE [Concomitant]
     Route: 048
     Dates: start: 20080811, end: 20080813
  9. ROSUVASTATIN [Concomitant]
     Route: 048
     Dates: start: 19930101
  10. CITALOPRAM HYDROBROMIDE [Concomitant]
     Route: 048
     Dates: start: 20050101
  11. IBANDRONIC ACID [Concomitant]
     Route: 048
     Dates: start: 20060101
  12. TIZANIDINE HCL [Concomitant]
     Route: 048
     Dates: start: 20030101
  13. IBUPROFEN [Concomitant]
     Route: 048

REACTIONS (1)
  - HYPOTENSION [None]
